FAERS Safety Report 8524163-1 (Version None)
Quarter: 2012Q3

REPORT INFORMATION
  Report Type: 
  Country: None (occurrence: None)
  Receive Date: 20120720
  Receipt Date: 20120718
  Transmission Date: 20120928
  Serious: Yes (Other)
  Sender: FDA-Public Use
  Company Number: JP-PFIZER INC-2012084543

PATIENT
  Age: 76 Year
  Sex: Male

DRUGS (4)
  1. NORVASC [Suspect]
     Indication: HYPERTENSION
     Dosage: 5 MG, 1X/DAY
     Route: 048
  2. ENALAPRIL MALEATE [Concomitant]
     Dosage: UNK
     Route: 048
  3. NORVASC [Suspect]
     Dosage: 2.5 MG, 1X/DAY
     Route: 048
  4. RIZE [Concomitant]
     Dosage: UNK
     Route: 048

REACTIONS (1)
  - PARKINSON'S DISEASE [None]
